FAERS Safety Report 7714874-X (Version None)
Quarter: 2011Q3

REPORT INFORMATION
  Report Type: 
  Country: None (occurrence: None)
  Receive Date: 20110810
  Receipt Date: 20110614
  Transmission Date: 20111222
  Serious: No
  Sender: FDA-Public Use
  Company Number: 1000021597

PATIENT
  Age: 42 Year
  Sex: Female

DRUGS (3)
  1. SAVELLA [Suspect]
     Indication: FIBROMYALGIA
     Dosage: 12.5 MG (12.5 MG, 1 IN 1 D), ORAL 25 MG (12.5 MG, 2 IN 1 D), ORAL 50 MG (25 MG, 2 IN 1 D), ORAL
     Route: 048
  2. SAVELLA [Suspect]
     Indication: FIBROMYALGIA
     Dosage: 100 MG (50 MG, 2 IN 1 D), ORAL 50 MG (50 MG, 1 IN 1 D), ORAL
     Route: 048
     Dates: start: 20110601, end: 20110601
  3. SAVELLA [Suspect]
     Indication: FIBROMYALGIA
     Dosage: 100 MG (50 MG, 2 IN 1 D), ORAL 50 MG (50 MG, 1 IN 1 D), ORAL
     Route: 048
     Dates: start: 20110601

REACTIONS (1)
  - RASH [None]
